FAERS Safety Report 25525441 (Version 1)
Quarter: 2025Q3

REPORT INFORMATION
  Report Type: Spontaneous
  Country: US (occurrence: None)
  Receive Date: 20250704
  Receipt Date: 20250704
  Transmission Date: 20251021
  Serious: Yes (Hospitalization)
  Sender: FDA-CTU
  Company Number: None

PATIENT
  Sex: Female

DRUGS (1)
  1. AUSTEDO [Suspect]
     Active Substance: DEUTETRABENAZINE
     Indication: Huntington^s disease
     Dosage: 18 MG TWICE A DAY ORAL?
     Route: 048
     Dates: start: 20220311

REACTIONS (3)
  - Gait disturbance [None]
  - Tremor [None]
  - Therapy interrupted [None]
